FAERS Safety Report 4659991-6 (Version None)
Quarter: 2005Q2

REPORT INFORMATION
  Report Type: 
  Country: None (occurrence: None)
  Receive Date: 20050510
  Receipt Date: 20050427
  Transmission Date: 20051028
  Serious: Yes (Hospitalization, Other)
  Sender: FDA-Public Use
  Company Number: 2005043296

PATIENT
  Age: 74 Year
  Sex: Male
  Weight: 86.1834 kg

DRUGS (7)
  1. CARDURA [Suspect]
     Indication: HYPERTENSION
     Dosage: 4 MG (4 MG, 1 IN 1 D), ORAL
     Route: 048
  2. DETROL LA [Suspect]
     Indication: ILL-DEFINED DISORDER
     Dosage: 4 MG ( 4 MG, 1 IN 1 D), ORAL
     Route: 048
     Dates: start: 20050303
  3. LORAZEPAM [Concomitant]
  4. LOTREL [Concomitant]
  5. CIPROFLOXACIN [Concomitant]
  6. ASPIRIN [Concomitant]
  7. AMIODARONE HCL [Concomitant]

REACTIONS (2)
  - ANURIA [None]
  - BLOOD PRESSURE SYSTOLIC INCREASED [None]
